FAERS Safety Report 14270387 (Version 1)
Quarter: 2017Q4

REPORT INFORMATION
  Report Type: Spontaneous
  Country: SE (occurrence: SE)
  Receive Date: 20171211
  Receipt Date: 20171211
  Transmission Date: 20180321
  Serious: Yes (Other)
  Sender: FDA-Public Use
  Company Number: SE-OTSUKA-2015_004709

PATIENT
  Age: 53 Year
  Sex: Female

DRUGS (1)
  1. ARIPIPRAZOLE. [Suspect]
     Active Substance: ARIPIPRAZOLE
     Indication: BIPOLAR I DISORDER
     Dosage: UNK
     Route: 048
     Dates: start: 2008

REACTIONS (3)
  - Diabetes mellitus [Unknown]
  - Embolism [Unknown]
  - Leg amputation [Unknown]

NARRATIVE: CASE EVENT DATE: 2009
